FAERS Safety Report 8373668-5 (Version None)
Quarter: 2012Q2

REPORT INFORMATION
  Report Type: 
  Country: None (occurrence: None)
  Receive Date: 20120521
  Receipt Date: 20120305
  Transmission Date: 20120825
  Serious: No
  Sender: FDA-Public Use
  Company Number: US-MYLANLABS-2012S1005095

PATIENT
  Age: 36 Year
  Sex: Male

DRUGS (2)
  1. LANSOPRAZOLE [Suspect]
     Route: 048
     Dates: start: 20100101, end: 20100801
  2. LANSOPRAZOLE [Suspect]
     Indication: GASTROOESOPHAGEAL REFLUX DISEASE
     Route: 048
     Dates: start: 20120201

REACTIONS (3)
  - THROAT IRRITATION [None]
  - DRUG INEFFECTIVE [None]
  - ABDOMINAL DISCOMFORT [None]
